FAERS Safety Report 8950052 (Version 1)
Quarter: 2012Q4

REPORT INFORMATION
  Report Type: 
  Country: US (occurrence: US)
  Receive Date: 20121205
  Receipt Date: 20121205
  Transmission Date: 20130627
  Serious: Yes (Other)
  Sender: FDA-Public Use
  Company Number: US-ASTELLAS-2012US009837

PATIENT
  Sex: Female

DRUGS (11)
  1. TARCEVA [Suspect]
     Indication: LUNG NEOPLASM MALIGNANT
     Dosage: 150 mg, UID/QD
     Route: 048
     Dates: start: 201001, end: 201205
  2. TARCEVA [Suspect]
     Dosage: 150 mg, UID/QD
     Route: 048
  3. TARCEVA [Suspect]
     Dosage: 150 mg, UID/QD
     Route: 048
  4. TARCEVA [Suspect]
     Dosage: 150 mg, UID/QD
     Route: 048
  5. TARCEVA [Suspect]
     Dosage: 150 mg, UID/QD
     Route: 048
  6. TARCEVA [Suspect]
     Dosage: 150 mg, UID/QD
     Route: 048
  7. TARCEVA [Suspect]
     Dosage: 150 mg, UID/QD
     Route: 048
  8. TARCEVA [Suspect]
     Dosage: 150 mg, UID/QD
     Route: 048
  9. TARCEVA [Suspect]
     Dosage: 150 mg, UID/QD
     Route: 048
  10. TARCEVA [Suspect]
     Dosage: 150 mg, UID/QD
     Route: 048
  11. TARCEVA [Suspect]
     Dosage: 150 mg, UID/QD
     Route: 048

REACTIONS (2)
  - Drug ineffective [Unknown]
  - Lung cancer metastatic [Unknown]
